FAERS Safety Report 24753118 (Version 4)
Quarter: 2025Q3

REPORT INFORMATION
  Report Type: Report from Study
  Country: CA (occurrence: CA)
  Receive Date: 20241219
  Receipt Date: 20250905
  Transmission Date: 20251020
  Serious: Yes (Hospitalization, Other)
  Sender: AMARIN
  Company Number: CA-Amarin Pharma  Inc-2024AMR000445

PATIENT
  Age: 75 Year
  Sex: Male

DRUGS (1)
  1. VASCEPA [Suspect]
     Active Substance: ICOSAPENT ETHYL
     Indication: Cardiovascular event prophylaxis
     Dates: start: 20240819, end: 2024

REACTIONS (10)
  - Chronic obstructive pulmonary disease [Unknown]
  - Pulmonary oedema [Unknown]
  - Pneumonia [Unknown]
  - Pericardial effusion [Unknown]
  - Pleural effusion [Unknown]
  - Renal disorder [Unknown]
  - Blood glucose increased [Unknown]
  - Low density lipoprotein decreased [Unknown]
  - Blood triglycerides increased [Unknown]
  - Wrong technique in product usage process [Unknown]

NARRATIVE: CASE EVENT DATE: 20240101
